FAERS Safety Report 4766754-X (Version None)
Quarter: 2005Q3

REPORT INFORMATION
  Report Type: 
  Country: None (occurrence: None)
  Receive Date: 20050912
  Receipt Date: 20050419
  Transmission Date: 20060218
  Serious: Yes (Other)
  Sender: FDA-Public Use
  Company Number: US-MERCK-0504USA03748

PATIENT
  Age: 45 Year
  Sex: Female
  Weight: 114 kg

DRUGS (4)
  1. VIOXX [Suspect]
     Indication: ARTHRALGIA
     Route: 048
     Dates: start: 19990501, end: 19991231
  2. VIOXX [Suspect]
     Route: 048
     Dates: start: 19990501, end: 19991231
  3. TYLENOL W/ CODEINE NO. 3 [Concomitant]
     Route: 065
     Dates: start: 19900620, end: 20050501
  4. DARVOCET-N 100 [Concomitant]
     Route: 065

REACTIONS (14)
  - BACK PAIN [None]
  - BLOOD TRIGLYCERIDES INCREASED [None]
  - CARDIAC DISORDER [None]
  - CARDIAC FAILURE CONGESTIVE [None]
  - CHEST PAIN [None]
  - DEPRESSION [None]
  - DIABETES MELLITUS [None]
  - HOT FLUSH [None]
  - HYPERTENSION [None]
  - MYOCARDIAL INFARCTION [None]
  - OBESITY [None]
  - OEDEMA [None]
  - STOMACH DISCOMFORT [None]
  - SWELLING [None]
